FAERS Safety Report 17535555 (Version 1)
Quarter: 2020Q1

REPORT INFORMATION
  Report Type: Spontaneous
  Country: US (occurrence: US)
  Receive Date: 20200312
  Receipt Date: 20200312
  Transmission Date: 20200409
  Serious: Yes (Hospitalization)
  Sender: FDA-Public Use
  Company Number: US-ASTRAZENECA-2020SE36025

PATIENT
  Sex: Male

DRUGS (4)
  1. SYNAGIS [Suspect]
     Active Substance: PALIVIZUMAB
     Indication: CONGESTIVE CARDIOMYOPATHY
     Route: 030
     Dates: start: 20200114
  2. SYNAGIS [Suspect]
     Active Substance: PALIVIZUMAB
     Indication: ANGELMAN^S SYNDROME
     Route: 030
     Dates: start: 20200114
  3. SYNAGIS [Suspect]
     Active Substance: PALIVIZUMAB
     Indication: LUNG DISORDER
     Route: 030
     Dates: start: 20200114
  4. SYNAGIS [Suspect]
     Active Substance: PALIVIZUMAB
     Indication: FAILURE TO THRIVE
     Route: 030
     Dates: start: 20200114

REACTIONS (2)
  - Influenza [Unknown]
  - Acute respiratory distress syndrome [Unknown]
